FAERS Safety Report 8454958-4 (Version None)
Quarter: 2012Q2

REPORT INFORMATION
  Report Type: 
  Country: None (occurrence: None)
  Receive Date: 20120621
  Receipt Date: 20120619
  Transmission Date: 20120825
  Serious: No
  Sender: FDA-Public Use
  Company Number: US-PFIZER INC-2012147850

PATIENT
  Sex: Female

DRUGS (3)
  1. CHANTIX [Suspect]
     Indication: SMOKING CESSATION THERAPY
     Dosage: UNK
     Dates: start: 20060101
  2. CHANTIX [Suspect]
     Dosage: UNK, 2X/DAY
  3. CHANTIX [Suspect]
     Dosage: UNK, 1X/DAY

REACTIONS (2)
  - ABNORMAL DREAMS [None]
  - INSOMNIA [None]
